FAERS Safety Report 5597517-3 (Version None)
Quarter: 2008Q1

REPORT INFORMATION
  Report Type: 
  Country: None (occurrence: None)
  Receive Date: 20080116
  Receipt Date: 20080107
  Transmission Date: 20080703
  Serious: Yes (Other)
  Sender: FDA-Public Use
  Company Number: A0701915A

PATIENT
  Age: 77 Year
  Sex: Female

DRUGS (1)
  1. METHYLCELLULOSE CAPLET (METHYLCELLULOSE) [Suspect]
     Indication: DRUG USE FOR UNKNOWN INDICATION
     Dosage: 1 CAPLET (S) ORAL
     Route: 048

REACTIONS (2)
  - EXPIRED DRUG ADMINISTERED [None]
  - RECTAL HAEMORRHAGE [None]
